FAERS Safety Report 5011381-2 (Version None)
Quarter: 2006Q2

REPORT INFORMATION
  Report Type: 
  Country: None (occurrence: None)
  Receive Date: 20060404
  Receipt Date: 20051123
  Transmission Date: 20061013
  Serious: No
  Sender: FDA-Public Use
  Company Number: USA0506100376

PATIENT
  Sex: Male

DRUGS (2)
  1. CYMBALTA [Suspect]
     Indication: DEPRESSION
     Dosage: 30 MG, DAILY (1/D)
  2. VISTARIL (HYDROXYZINE EMBONATE) [Concomitant]

REACTIONS (2)
  - EYE DISORDER [None]
  - PARAESTHESIA [None]
